FAERS Safety Report 10752214 (Version 3)
Quarter: 2015Q3

REPORT INFORMATION
  Report Type: Report from Study
  Country: US (occurrence: US)
  Receive Date: 20150130
  Receipt Date: 20150819
  Transmission Date: 20151125
  Serious: No
  Sender: FDA-Public Use
  Company Number: US-GILEAD-2015-0134612

PATIENT
  Age: 41 Year
  Sex: Female

DRUGS (5)
  1. REMODULIN [Concomitant]
     Active Substance: TREPROSTINIL
  2. COUMADIN [Concomitant]
     Active Substance: WARFARIN SODIUM
  3. ORENITRAM [Suspect]
     Active Substance: TREPROSTINIL
     Dosage: 7.5 MG, BID
     Route: 065
  4. ORENITRAM [Suspect]
     Active Substance: TREPROSTINIL
     Indication: PRODUCT USED FOR UNKNOWN INDICATION
     Dosage: UNK
     Route: 065
  5. AMBRISENTAN [Suspect]
     Active Substance: AMBRISENTAN
     Indication: PULMONARY ARTERIAL HYPERTENSION
     Dosage: 10 MG, QD
     Route: 065
     Dates: start: 20130716

REACTIONS (2)
  - Migraine [Unknown]
  - Headache [Unknown]
